FAERS Safety Report 22589168 (Version 1)
Quarter: 2023Q2

REPORT INFORMATION
  Report Type: Spontaneous
  Country: US (occurrence: None)
  Receive Date: 20230609
  Receipt Date: 20230609
  Transmission Date: 20230722
  Serious: No
  Sender: FDA-Public Use
  Company Number: None

PATIENT
  Age: 52 Year
  Sex: Female
  Weight: 75.75 kg

DRUGS (18)
  1. CAPECITABINE [Suspect]
     Active Substance: CAPECITABINE
     Indication: Breast cancer female
  2. ANASTROZOLE [Concomitant]
     Active Substance: ANASTROZOLE
  3. ATIVAN [Concomitant]
  4. CALCIUM/MAGNESIUM/ZINC [Concomitant]
  5. GABAPENTIN [Concomitant]
  6. HERCEPTIN [Concomitant]
  7. KEPPRA [Concomitant]
     Active Substance: LEVETIRACETAM
  8. LISINOPRIL [Concomitant]
  9. MULTIVITAMIN [Concomitant]
  10. OXYCODONE [Concomitant]
  11. OXYCONTIN [Concomitant]
  12. PROCHLORPERAZINE [Concomitant]
  13. PROTONIX [Concomitant]
     Active Substance: PANTOPRAZOLE SODIUM
  14. TUMERIC [Concomitant]
  15. POTASSIUM [Concomitant]
  16. TUKYSA [Concomitant]
     Active Substance: TUCATINIB
  17. XANAX [Concomitant]
     Active Substance: ALPRAZOLAM
  18. ZOFRAN [Concomitant]

REACTIONS (2)
  - Diarrhoea [None]
  - Constipation [None]
